FAERS Safety Report 10892366 (Version 2)
Quarter: 2015Q1

REPORT INFORMATION
  Report Type: Spontaneous
  Country: JP (occurrence: JP)
  Receive Date: 20150306
  Receipt Date: 20150313
  Transmission Date: 20150721
  Serious: Yes (Hospitalization)
  Sender: FDA-Public Use
  Company Number: JP-ASTRAZENECA-2015SE19838

PATIENT
  Age: 17541 Day
  Sex: Male
  Weight: 118 kg

DRUGS (9)
  1. JANUVIA [Concomitant]
     Active Substance: SITAGLIPTIN PHOSPHATE
     Indication: TYPE 2 DIABETES MELLITUS
     Route: 048
     Dates: start: 20140802, end: 20140811
  2. NIFEDIPINE CR [Suspect]
     Active Substance: NIFEDIPINE
     Indication: HYPERTENSION
     Route: 048
     Dates: start: 20140802
  3. ITRIZOLE [Concomitant]
     Active Substance: ITRACONAZOLE
     Indication: TINEA PEDIS
     Route: 048
     Dates: start: 20140811, end: 20140817
  4. LUPRAC [Suspect]
     Active Substance: TORSEMIDE
     Indication: CARDIAC FAILURE
     Route: 048
     Dates: start: 20140902, end: 20150226
  5. OVULANZE [Suspect]
     Active Substance: OMEPRAZOLE
     Indication: GASTROOESOPHAGEAL REFLUX DISEASE
     Route: 048
     Dates: start: 20140802
  6. ITRIZOLE [Concomitant]
     Active Substance: ITRACONAZOLE
     Indication: TINEA PEDIS
     Route: 048
     Dates: start: 20140906, end: 20140912
  7. FORXIGA [Suspect]
     Active Substance: DAPAGLIFLOZIN
     Indication: TYPE 2 DIABETES MELLITUS
     Route: 048
     Dates: start: 20140807, end: 20150131
  8. VICTOZA [Suspect]
     Active Substance: LIRAGLUTIDE
     Indication: TYPE 2 DIABETES MELLITUS
     Route: 058
     Dates: start: 20140826
  9. ITRIZOLE [Concomitant]
     Active Substance: ITRACONAZOLE
     Indication: TINEA PEDIS
     Route: 048
     Dates: start: 20141015, end: 20141021

REACTIONS (2)
  - Thrombotic cerebral infarction [Recovered/Resolved with Sequelae]
  - Polycythaemia [Unknown]

NARRATIVE: CASE EVENT DATE: 20150130
